FAERS Safety Report 5718507-3 (Version None)
Quarter: 2008Q2

REPORT INFORMATION
  Report Type: 
  Country: None (occurrence: None)
  Receive Date: 20080425
  Receipt Date: 20080415
  Transmission Date: 20081010
  Serious: Yes (Death)
  Sender: FDA-Public Use
  Company Number: JP-WYE-H03096708

PATIENT
  Age: 40 Year
  Sex: Female

DRUGS (2)
  1. AMIODARONE HCL [Suspect]
     Indication: VENTRICULAR TACHYCARDIA
     Dosage: INITIAL RAPID INFUSION OF 1.25 MG/DL AT RATE OF 10ML/MIN
     Route: 042
     Dates: start: 20080301, end: 20080301
  2. AMIODARONE HCL [Suspect]
     Dosage: LOADING INFUSION OF 1.50 MG/DL AT RATE OF 33 ML/HR
     Route: 042
     Dates: start: 20080301, end: 20080302

REACTIONS (1)
  - DEATH [None]
